FAERS Safety Report 6543708-4 (Version None)
Quarter: 2010Q1

REPORT INFORMATION
  Report Type: 
  Country: None (occurrence: None)
  Receive Date: 20100119
  Receipt Date: 20100119
  Transmission Date: 20100710
  Serious: Yes (Other)
  Sender: FDA-Public Use
  Company Number: None

PATIENT
  Age: 57 Year
  Sex: Female
  Weight: 88.4514 kg

DRUGS (1)
  1. ZICAM ORAL MIST MINT FLOVOE ZICAM LLC [Suspect]
     Indication: NASOPHARYNGITIS
     Dosage: SPRAY 4 TIMES IN MOUTH REPEAT EVERY 3 HR PO
     Route: 048
     Dates: start: 20091122, end: 20091123

REACTIONS (2)
  - AGEUSIA [None]
  - DYSGEUSIA [None]
